FAERS Safety Report 8291170-6 (Version None)
Quarter: 2012Q2

REPORT INFORMATION
  Report Type: 
  Country: None (occurrence: None)
  Receive Date: 20120417
  Receipt Date: 20120411
  Transmission Date: 20120825
  Serious: Yes (Hospitalization, Other)
  Sender: FDA-Public Use
  Company Number: US-MERCK-1106USA02915

PATIENT
  Age: 75 Year
  Sex: Female
  Weight: 70 kg

DRUGS (5)
  1. FOSAMAX [Suspect]
     Indication: OSTEOPOROSIS
     Route: 048
     Dates: start: 20040201
  2. VITAMIN D (UNSPECIFIED) [Concomitant]
     Route: 065
  3. CALCIUM (UNSPECIFIED) [Concomitant]
     Route: 065
     Dates: end: 20100101
  4. LASIX [Concomitant]
     Indication: HYPERTENSION
     Route: 065
  5. SYNTHROID [Concomitant]
     Indication: HYPOTHYROIDISM
     Route: 065

REACTIONS (22)
  - ANAEMIA [None]
  - INFECTION [None]
  - POST PROCEDURAL HAEMORRHAGE [None]
  - SMALL INTESTINAL OBSTRUCTION [None]
  - BONE DENSITY DECREASED [None]
  - GAIT DISTURBANCE [None]
  - DEHYDRATION [None]
  - SPONDYLOLYSIS [None]
  - FIBULA FRACTURE [None]
  - UROSEPSIS [None]
  - FRACTURE NONUNION [None]
  - RIB FRACTURE [None]
  - FALL [None]
  - RENAL FAILURE ACUTE [None]
  - FRACTURE [None]
  - TOOTH DISORDER [None]
  - HYPERCALCAEMIA [None]
  - ANGIOPATHY [None]
  - SPONDYLOLISTHESIS [None]
  - FEMUR FRACTURE [None]
  - OSTEOPENIA [None]
  - OSTEOARTHRITIS [None]
